FAERS Safety Report 5603334-8 (Version None)
Quarter: 2008Q1

REPORT INFORMATION
  Report Type: 
  Country: None (occurrence: None)
  Receive Date: 20080122
  Receipt Date: 20080103
  Transmission Date: 20080703
  Serious: Yes (Life-Threatening, Hospitalization, Other)
  Sender: FDA-Public Use
  Company Number: DSA_31227_2008

PATIENT
  Sex: Female

DRUGS (7)
  1. TEMESTA /00273201/ (TEMESTA - LORAZEPAM) 1 MG (NOT SPECIFIED) [Suspect]
     Indication: DRUG USE FOR UNKNOWN INDICATION
     Dosage: (6 DF 1X ORAL), (UP TO 3 TIMES A DAY ORAL)
     Route: 048
     Dates: start: 20071129, end: 20071129
  2. SOMNIUM /01630301/ (SOMNIUM - DIPHENHYDRAMINE HYDROCHLORIDE/LORAZEPAM) [Suspect]
     Indication: DRUG USE FOR UNKNOWN INDICATION
     Dosage: (6 DF 1X ORAL), (1 DF QD ORAL)
     Route: 048
     Dates: start: 20071129, end: 20071129
  3. EFFEXOR [Suspect]
     Indication: DEPRESSION
     Dosage: (37.5 MG QD ORAL), (37.5 MG QD ORAL)
     Route: 048
     Dates: start: 20060101, end: 20070101
  4. EFFEXOR [Suspect]
     Indication: DEPRESSION
     Dosage: (37.5 MG QD ORAL), (37.5 MG QD ORAL)
     Route: 048
     Dates: start: 20071203
  5. ZYPREXA [Suspect]
     Indication: DRUG USE FOR UNKNOWN INDICATION
     Dosage: (5 MG BID ORAL)
     Route: 048
     Dates: start: 20071203, end: 20071204
  6. SEROQUEL [Suspect]
     Indication: DRUG USE FOR UNKNOWN INDICATION
     Dosage: (25 MG QD ORAL)
     Route: 048
     Dates: start: 20071201, end: 20071202
  7. ATARAX [Suspect]
     Indication: DRUG USE FOR UNKNOWN INDICATION
     Dosage: (25 MG QD ORAL)
     Route: 048
     Dates: start: 20071201, end: 20071202

REACTIONS (10)
  - DAYDREAMING [None]
  - DRUG EFFECT DECREASED [None]
  - HALLUCINATION, VISUAL [None]
  - HYPOTENSION [None]
  - INTENTIONAL OVERDOSE [None]
  - MOVEMENT DISORDER [None]
  - NAUSEA [None]
  - SPEECH DISORDER [None]
  - SUICIDE ATTEMPT [None]
  - VERTIGO [None]
